FAERS Safety Report 24099485 (Version 1)
Quarter: 2024Q3

REPORT INFORMATION
  Report Type: Spontaneous
  Country: US (occurrence: US)
  Receive Date: 20240716
  Receipt Date: 20240716
  Transmission Date: 20241017
  Serious: No
  Sender: NOVO NORDISK
  Company Number: US-NOVOPROD-1211500

PATIENT
  Sex: Male

DRUGS (1)
  1. OZEMPIC [Suspect]
     Active Substance: SEMAGLUTIDE
     Indication: Product used for unknown indication
     Dosage: UNK
     Route: 058
     Dates: start: 20240105, end: 20240401

REACTIONS (3)
  - Shoulder injury related to vaccine administration [Not Recovered/Not Resolved]
  - Weight decreased [Unknown]
  - Product label confusion [Unknown]

NARRATIVE: CASE EVENT DATE: 20240106
